FAERS Safety Report 20475340 (Version 1)
Quarter: 2022Q1

REPORT INFORMATION
  Report Type: Spontaneous
  Country: US (occurrence: None)
  Receive Date: 20220214
  Receipt Date: 20220214
  Transmission Date: 20220423
  Serious: Yes (Disabling)
  Sender: FDA-Public Use
  Company Number: None

PATIENT
  Age: 47 Year
  Sex: Female
  Weight: 60.75 kg

DRUGS (5)
  1. MONOFERRIC [Suspect]
     Active Substance: FERRIC DERISOMALTOSE
     Indication: Iron deficiency anaemia
     Dosage: OTHER FREQUENCY : ONCE BY IV INFUSIO;?
     Route: 041
     Dates: start: 20211111, end: 20211111
  2. 25mg spironolactone/day [Concomitant]
  3. VITAMINS [Concomitant]
     Active Substance: VITAMINS
  4. ZINC [Concomitant]
     Active Substance: ZINC
  5. VITAMIN D [Concomitant]
     Active Substance: VITAMIN D NOS

REACTIONS (18)
  - Tremor [None]
  - Gait disturbance [None]
  - Dysstasia [None]
  - Pain [None]
  - Chest discomfort [None]
  - Chest discomfort [None]
  - Palpitations [None]
  - Fatigue [None]
  - Chills [None]
  - Night sweats [None]
  - C-reactive protein increased [None]
  - Hepatic enzyme increased [None]
  - Blood pressure increased [None]
  - Cystitis noninfective [None]
  - Eye inflammation [None]
  - Intermenstrual bleeding [None]
  - Pain [None]
  - Migraine [None]

NARRATIVE: CASE EVENT DATE: 20211114
